FAERS Safety Report 5700567-7 (Version None)
Quarter: 2008Q2

REPORT INFORMATION
  Report Type: 
  Country: None (occurrence: None)
  Receive Date: 20080410
  Receipt Date: 20080401
  Transmission Date: 20081010
  Serious: Yes (Other)
  Sender: FDA-Public Use
  Company Number: DK-JNJFOC-20080400531

PATIENT
  Age: 75 Year
  Sex: Male

DRUGS (7)
  1. RISPERDAL [Suspect]
     Indication: PSYCHOTIC DISORDER
  2. RISPERDAL [Suspect]
     Indication: MANIA
  3. RISPERDAL [Suspect]
     Indication: BIPOLAR DISORDER
  4. LITHIUM CARBONATE [Interacting]
     Indication: PSYCHOTIC DISORDER
  5. LITHIUM CARBONATE [Interacting]
     Indication: MANIA
  6. LITHIUM CARBONATE [Interacting]
     Indication: BIPOLAR DISORDER
  7. SEROQUEL [Concomitant]
     Indication: MANIA

REACTIONS (9)
  - ASTHENIA [None]
  - BLUNTED AFFECT [None]
  - COMMUNICATION DISORDER [None]
  - DRUG INTERACTION [None]
  - ENCEPHALOPATHY [None]
  - HYPERTHERMIA [None]
  - LETHARGY [None]
  - MUSCLE RIGIDITY [None]
  - TREMOR [None]
